FAERS Safety Report 8412563 (Version 2)
Quarter: 2014Q1

REPORT INFORMATION
  Report Type: Spontaneous
  Country: US (occurrence: US)
  Receive Date: 20120217
  Receipt Date: 20140223
  Transmission Date: 20141002
  Serious: No
  Sender: FDA-Public Use
  Company Number: US-ALLERGAN-1109259US

PATIENT
  Sex: Female

DRUGS (4)
  1. TAZORAC GEL 0.1% [Suspect]
     Indication: ACNE
     Dosage: 1 DF, QHS
     Route: 061
     Dates: start: 201102, end: 20110707
  2. DUAC [Concomitant]
     Indication: ACNE
     Dosage: 1 DF, QAM
     Route: 061
  3. FINACEA [Concomitant]
     Indication: ACNE
     Dosage: 1 DF, QAM
     Route: 061
  4. ALPHA HYDROXY GEL [Concomitant]
     Indication: ACNE
     Dosage: 1 DF, BID
     Route: 061

REACTIONS (1)
  - Pregnancy [Unknown]
